FAERS Safety Report 6784190-1 (Version None)
Quarter: 2010Q2

REPORT INFORMATION
  Report Type: 
  Country: None (occurrence: None)
  Receive Date: 20100622
  Receipt Date: 20100609
  Transmission Date: 20101027
  Serious: Yes (Other)
  Sender: FDA-Public Use
  Company Number: DE-ELI_LILLY_AND_COMPANY-DE201006002687

PATIENT
  Sex: Female

DRUGS (3)
  1. FORTEO [Suspect]
     Indication: OSTEOPOROSIS
     Dosage: UNK, DAILY (1/D)
     Route: 058
     Dates: start: 20100310, end: 20100531
  2. VITAMIN D [Concomitant]
  3. CALCIUM                                 /N/A/ [Concomitant]

REACTIONS (2)
  - PERICARDIAL EFFUSION [None]
  - WEIGHT INCREASED [None]
